FAERS Safety Report 6204716-6 (Version None)
Quarter: 2009Q2

REPORT INFORMATION
  Report Type: 
  Country: None (occurrence: None)
  Receive Date: 20090527
  Receipt Date: 20090519
  Transmission Date: 20091009
  Serious: Yes (Other)
  Sender: FDA-Public Use
  Company Number: PHEH2009US05042

PATIENT
  Age: 13 Year
  Sex: Male

DRUGS (1)
  1. FOCALIN [Suspect]

REACTIONS (1)
  - AURA [None]
